FAERS Safety Report 8037692-4 (Version None)
Quarter: 2012Q1

REPORT INFORMATION
  Report Type: 
  Country: None (occurrence: None)
  Receive Date: 20120111
  Receipt Date: 20120103
  Transmission Date: 20120608
  Serious: Yes (Hospitalization)
  Sender: FDA-Public Use
  Company Number: DE-TEVA-315990GER

PATIENT
  Age: 63 Year
  Sex: Female

DRUGS (1)
  1. ETOPOSIDE [Suspect]
     Indication: BRONCHIAL CARCINOMA
     Route: 042
     Dates: start: 20110720, end: 20110722

REACTIONS (2)
  - CYSTITIS HAEMORRHAGIC [None]
  - HAEMATURIA [None]
